FAERS Safety Report 10854598 (Version 1)
Quarter: 2015Q1

REPORT INFORMATION
  Report Type: Spontaneous
  Country: US (occurrence: US)
  Receive Date: 20150223
  Receipt Date: 20150223
  Transmission Date: 20150721
  Serious: No
  Sender: FDA-Public Use
  Company Number: US-TEVA-542257USA

PATIENT
  Sex: Female
  Weight: 86.26 kg

DRUGS (14)
  1. OXYBUTIN [Concomitant]
     Active Substance: OXYBUTYNIN
  2. CRANBERRY. [Concomitant]
     Active Substance: CRANBERRY
  3. COPAXONE [Suspect]
     Active Substance: GLATIRAMER ACETATE
     Dates: start: 201412
  4. TRAMADOL [Concomitant]
     Active Substance: TRAMADOL
  5. CALCIUM [Concomitant]
     Active Substance: CALCIUM
  6. SKELAXIN [Concomitant]
     Active Substance: METAXALONE
  7. NAPROSYN [Concomitant]
     Active Substance: NAPROXEN
  8. ACYCLOVIR. [Concomitant]
     Active Substance: ACYCLOVIR
  9. AMANTADINE [Concomitant]
     Active Substance: AMANTADINE
  10. ASPIRIN. [Concomitant]
     Active Substance: ASPIRIN
  11. COPAXONE [Suspect]
     Active Substance: GLATIRAMER ACETATE
     Indication: MULTIPLE SCLEROSIS
     Dosage: 20 MILLIGRAM DAILY;
     Dates: end: 201412
  12. ALLEGRA [Concomitant]
     Active Substance: FEXOFENADINE HYDROCHLORIDE
  13. BUPROPION [Concomitant]
     Active Substance: BUPROPION
  14. SINGULAIR [Concomitant]
     Active Substance: MONTELUKAST SODIUM

REACTIONS (3)
  - Inappropriate schedule of drug administration [Recovering/Resolving]
  - Injection site reaction [Recovering/Resolving]
  - Treatment noncompliance [Recovering/Resolving]

NARRATIVE: CASE EVENT DATE: 2014
